FAERS Safety Report 9190424 (Version 1)
Quarter: 2013Q1

REPORT INFORMATION
  Report Type: Spontaneous
  Country: BR (occurrence: BR)
  Receive Date: 20130326
  Receipt Date: 20130326
  Transmission Date: 20140127
  Serious: Yes (Other)
  Sender: FDA-Public Use
  Company Number: BR-009507513-1303BRA011345

PATIENT
  Age: 62 None
  Sex: Female
  Weight: 60 kg

DRUGS (7)
  1. REBETOL [Suspect]
     Indication: HEPATITIS C
     Dosage: UNK
     Route: 048
     Dates: start: 200708, end: 200804
  2. PEG-INTRON [Suspect]
     Indication: HEPATITIS C
     Dosage: UNK
     Route: 058
     Dates: start: 200909, end: 2010
  3. INTERFERON (UNSPECIFIED) [Concomitant]
     Indication: HEPATITIS C
     Dosage: UNK
     Dates: start: 200708, end: 200804
  4. RIBAVIRIN [Concomitant]
     Indication: HEPATITIS C
     Dosage: 500 MG, BID
     Route: 048
     Dates: start: 200909, end: 2010
  5. OMEPRAZOLE (GENERIC) [Concomitant]
     Indication: PROPHYLAXIS
     Dosage: 20 MG, QD
     Route: 048
     Dates: start: 2003
  6. LOSARTAN POTASSIUM (GENERIC) [Concomitant]
     Indication: HYPERTENSION
     Dosage: 50 MG, QD
     Route: 048
     Dates: start: 2005
  7. ATENOLOL (GENERIC) [Concomitant]
     Indication: HYPERTENSION
     Dosage: 50 MG, QD
     Route: 048
     Dates: start: 2005

REACTIONS (2)
  - Thyroid cancer [Not Recovered/Not Resolved]
  - Hepatitis C RNA [Not Recovered/Not Resolved]
